FAERS Safety Report 26082014 (Version 1)
Quarter: 2025Q4

REPORT INFORMATION
  Report Type: Spontaneous
  Country: US (occurrence: None)
  Receive Date: 20251124
  Receipt Date: 20251124
  Transmission Date: 20260117
  Serious: Yes (Hospitalization, Other)
  Sender: ENDO
  Company Number: US-ENDO USA, INC.-2025-002322

PATIENT
  Age: 34 Year
  Sex: Male

DRUGS (3)
  1. FLUOXETINE HYDROCHLORIDE [Suspect]
     Active Substance: FLUOXETINE HYDROCHLORIDE
     Indication: Product used for unknown indication
     Dosage: UNK UNKNOWN, UNKNOWN (3 MONTHS PRIOR TO CURRENT PRESENTATION)
     Route: 065
  2. QUETIAPINE FUMARATE [Suspect]
     Active Substance: QUETIAPINE FUMARATE
     Indication: Product used for unknown indication
     Dosage: UNK UNKNOWN, UNKNOWN (3 MONTHS PRIOR TO CURRENT PRESENTATION)
     Route: 065
  3. VALPROATE [Suspect]
     Active Substance: VALPROIC ACID
     Indication: Product used for unknown indication
     Dosage: UNK UNKNOWN, UNKNOWN (3 MONTHS PRIOR TO CURRENT PRESENTATION)
     Route: 065

REACTIONS (3)
  - Parkinsonism [Recovered/Resolved]
  - Drug interaction [Recovered/Resolved]
  - Suicide attempt [Recovered/Resolved]
